FAERS Safety Report 16695817 (Version 2)
Quarter: 2019Q3

REPORT INFORMATION
  Report Type: Spontaneous
  Country: US (occurrence: US)
  Receive Date: 20190813
  Receipt Date: 20190911
  Transmission Date: 20191004
  Serious: Yes (Death)
  Sender: FDA-Public Use
  Company Number: US-BIOGEN-2019BI00771857

PATIENT
  Age: 11 Year
  Sex: Male
  Weight: 23.6 kg

DRUGS (1)
  1. SPINRAZA [Suspect]
     Active Substance: NUSINERSEN
     Indication: SPINAL MUSCULAR ATROPHY
     Dosage: LD: FIRST 3 LOADING DOSES 1PER14 DAYS; ?4TH LD: 1 AFTER 30 DAYS. ?MAINTENANCE DOSES: 1 PER 4 MONTHS
     Route: 037
     Dates: start: 20170307, end: 201908

REACTIONS (1)
  - Death [Fatal]

NARRATIVE: CASE EVENT DATE: 20190804
